FAERS Safety Report 23962283 (Version 1)
Quarter: 2024Q2

REPORT INFORMATION
  Report Type: Spontaneous
  Country: US (occurrence: None)
  Receive Date: 20240610
  Receipt Date: 20240610
  Transmission Date: 20240716
  Serious: No
  Sender: FDA-Public Use
  Company Number: None

PATIENT
  Age: 53 Year
  Sex: Female

DRUGS (1)
  1. KESIMPTA [Suspect]
     Active Substance: OFATUMUMAB
     Indication: Multiple sclerosis
     Route: 058
     Dates: start: 20240609

REACTIONS (5)
  - Yawning [None]
  - Dyskinesia [None]
  - Chills [None]
  - Chills [None]
  - Chills [None]

NARRATIVE: CASE EVENT DATE: 20240609
